FAERS Safety Report 13107197 (Version 1)
Quarter: 2017Q1

REPORT INFORMATION
  Report Type: Spontaneous
  Country: FR (occurrence: FR)
  Receive Date: 20170112
  Receipt Date: 20170112
  Transmission Date: 20170428
  Serious: Yes (Hospitalization, Other)
  Sender: FDA-Public Use
  Company Number: FR-BAXTER-2017BAX000112

PATIENT
  Age: 5 Year
  Sex: Male
  Weight: 22 kg

DRUGS (5)
  1. CEFTRIAXONE. [Suspect]
     Active Substance: CEFTRIAXONE
     Indication: PYREXIA
     Dosage: IV INFUSION
     Route: 042
     Dates: start: 20161116, end: 20161127
  2. OPDIVO [Suspect]
     Active Substance: NIVOLUMAB
     Indication: METASTATIC MALIGNANT MELANOMA
     Dosage: 2 INJECTIONS ON D1 AND D15, FIRST COURSE
     Route: 042
     Dates: start: 20161028, end: 20161111
  3. AMIKACINE [Suspect]
     Active Substance: AMIKACIN
     Indication: PYREXIA
     Dosage: IV INFUSION
     Route: 042
     Dates: start: 20161119, end: 20161120
  4. ENDOXAN 1000 MG, POUDRE POUR SOLUTION INJECTABLE [Suspect]
     Active Substance: CYCLOPHOSPHAMIDE
     Indication: METASTATIC MALIGNANT MELANOMA
     Dosage: SINGLE INTAKE FROM D1 TO D7 AND ON D15, FIRST COURSE
     Route: 065
     Dates: start: 20161028, end: 20161111
  5. VANCOMYCINE MYLAN [Suspect]
     Active Substance: VANCOMYCIN
     Indication: PYREXIA
     Dosage: IV INFUSION
     Route: 042
     Dates: start: 20161119, end: 20161121

REACTIONS (3)
  - Neoplasm progression [Unknown]
  - Pyrexia [Unknown]
  - Acute kidney injury [Recovered/Resolved]

NARRATIVE: CASE EVENT DATE: 20161120
